FAERS Safety Report 5253862-2 (Version None)
Quarter: 2007Q1

REPORT INFORMATION
  Report Type: 
  Country: None (occurrence: None)
  Receive Date: 20070227
  Receipt Date: 20070213
  Transmission Date: 20070707
  Serious: Yes (Hospitalization)
  Sender: FDA-Public Use
  Company Number: T200700199

PATIENT
  Age: 41 Year
  Sex: Male

DRUGS (1)
  1. OPTIRAY 160 [Suspect]
     Indication: COMPUTERISED TOMOGRAM ABNORMAL
     Dosage: 150 ML, SINGLE

REACTIONS (11)
  - ACUTE PULMONARY OEDEMA [None]
  - ANAPHYLACTIC REACTION [None]
  - BLOOD PRESSURE DECREASED [None]
  - CHEST PAIN [None]
  - DYSPHAGIA [None]
  - EJECTION FRACTION DECREASED [None]
  - ELECTROCARDIOGRAM ST SEGMENT ABNORMAL [None]
  - PRURITUS [None]
  - TROPONIN T INCREASED [None]
  - VENTRICULAR HYPOKINESIA [None]
  - WHEEZING [None]
